FAERS Safety Report 5209694-4 (Version None)
Quarter: 2007Q1

REPORT INFORMATION
  Report Type: 
  Country: None (occurrence: None)
  Receive Date: 20070116
  Receipt Date: 20070104
  Transmission Date: 20070707
  Serious: Yes (Hospitalization)
  Sender: FDA-Public Use
  Company Number: FR-PFIZER INC-2006074038

PATIENT
  Age: 63 Year
  Sex: Female

DRUGS (5)
  1. NEURONTIN [Suspect]
     Dosage: DAILY DOSE:300MG
     Route: 048
     Dates: start: 20060506, end: 20060509
  2. ACYCLOVIR [Concomitant]
     Indication: ILL-DEFINED DISORDER
     Dosage: DAILY DOSE:250MG
     Route: 042
     Dates: start: 20060504, end: 20060509
  3. DUPHALAC [Concomitant]
     Route: 048
  4. HEPARIN [Concomitant]
     Route: 042
  5. NEXIUM [Concomitant]
     Route: 048

REACTIONS (1)
  - COMA [None]
